FAERS Safety Report 4562524-6 (Version None)
Quarter: 2005Q1

REPORT INFORMATION
  Report Type: 
  Country: None (occurrence: None)
  Receive Date: 20050124
  Receipt Date: 20050110
  Transmission Date: 20050727
  Serious: Yes (Hospitalization)
  Sender: FDA-Public Use
  Company Number: HQWYE522811JAN05

PATIENT
  Age: 67 Year
  Sex: Female

DRUGS (2)
  1. ADVIL [Suspect]
     Indication: DRUG USE FOR UNKNOWN INDICATION
  2. BETASERON [Suspect]
     Indication: DRUG USE FOR UNKNOWN INDICATION

REACTIONS (1)
  - RECTAL HAEMORRHAGE [None]
